FAERS Safety Report 13075767 (Version 2)
Quarter: 2017Q1

REPORT INFORMATION
  Report Type: Report from Study
  Country: US (occurrence: US)
  Receive Date: 20161230
  Receipt Date: 20170110
  Transmission Date: 20170428
  Serious: Yes (Hospitalization, Other)
  Sender: FDA-Public Use
  Company Number: US-ASTRAZENECA-2014SE00945

PATIENT
  Age: 19 Year
  Sex: Male
  Weight: 110.2 kg

DRUGS (8)
  1. SEROQUEL [Suspect]
     Active Substance: QUETIAPINE FUMARATE
     Indication: SCHIZOPHRENIA
     Route: 048
     Dates: start: 2008, end: 2015
  2. SEROQUEL [Suspect]
     Active Substance: QUETIAPINE FUMARATE
     Indication: SCHIZOPHRENIA
     Dosage: 300.0MG UNKNOWN
     Route: 048
  3. SEROQUEL [Suspect]
     Active Substance: QUETIAPINE FUMARATE
     Indication: SCHIZOPHRENIA
     Route: 048
     Dates: start: 2013, end: 201311
  4. SEROQUEL [Suspect]
     Active Substance: QUETIAPINE FUMARATE
     Indication: SCHIZOPHRENIA
     Dosage: 50.0MG UNKNOWN
     Route: 048
     Dates: start: 2015
  5. METFORMIN [Concomitant]
     Active Substance: METFORMIN HYDROCHLORIDE
     Indication: DIABETES MELLITUS
     Route: 048
     Dates: start: 201304
  6. PLAVIX [Concomitant]
     Active Substance: CLOPIDOGREL BISULFATE
     Indication: ANXIETY
  7. SEROQUEL [Suspect]
     Active Substance: QUETIAPINE FUMARATE
     Indication: SCHIZOPHRENIA
     Dosage: 200.0MG UNKNOWN
     Route: 048
     Dates: start: 2015
  8. ABILIFY [Concomitant]
     Active Substance: ARIPIPRAZOLE
     Indication: SCHIZOPHRENIA
     Route: 048
     Dates: start: 2007

REACTIONS (22)
  - Pain [Unknown]
  - Gastrooesophageal reflux disease [Not Recovered/Not Resolved]
  - Somnolence [Unknown]
  - Glucose tolerance impaired [Unknown]
  - Chest pain [Unknown]
  - Vision blurred [Unknown]
  - Chest discomfort [Unknown]
  - Fall [Unknown]
  - Adverse event [Unknown]
  - Tremor [Unknown]
  - Dysarthria [Unknown]
  - Dizziness [Unknown]
  - Gastrooesophageal sphincter insufficiency [Unknown]
  - Insomnia [Unknown]
  - Drug withdrawal syndrome [Unknown]
  - Cholelithiasis [Unknown]
  - Dysphagia [Unknown]
  - Panic attack [Unknown]
  - Oesophageal disorder [Unknown]
  - Muscle spasms [Unknown]
  - Dry mouth [Unknown]
  - Anxiety [Unknown]

NARRATIVE: CASE EVENT DATE: 2008
